FAERS Safety Report 5923270-7 (Version None)
Quarter: 2008Q4

REPORT INFORMATION
  Report Type: 
  Country: None (occurrence: None)
  Receive Date: 20081020
  Receipt Date: 20081006
  Transmission Date: 20090506
  Serious: Yes (Hospitalization)
  Sender: FDA-Public Use
  Company Number: FR-SOLVAY-00308004702

PATIENT
  Age: 13203 Day
  Sex: Female

DRUGS (4)
  1. CREON [Suspect]
     Indication: DRUG USE FOR UNKNOWN INDICATION
     Dosage: DAILY DOSE: 75000 INTERNATIONAL UNIT(S)
     Route: 048
     Dates: start: 20080712, end: 20080715
  2. TRIFLUCAN [Suspect]
     Indication: OESOPHAGEAL CANDIDIASIS
     Dosage: DAILY DOSE: 100 MILLIGRAM(S)
     Route: 048
     Dates: start: 20080711, end: 20080715
  3. FUNGIZONE [Suspect]
     Indication: OESOPHAGEAL CANDIDIASIS
     Dosage: DAILY DOSE:  UNKNOWN
     Route: 048
     Dates: start: 20080626, end: 20080713
  4. FUNGIZONE [Suspect]
     Dosage: DAILY DOSE:  UNKNOWN; MOUTH BATH
     Route: 002
     Dates: start: 20080711

REACTIONS (1)
  - CYTOLYTIC HEPATITIS [None]
